FAERS Safety Report 5591576-X (Version None)
Quarter: 2008Q1

REPORT INFORMATION
  Report Type: 
  Country: None (occurrence: None)
  Receive Date: 20080111
  Receipt Date: 20071227
  Transmission Date: 20080703
  Serious: Yes (Other)
  Sender: FDA-Public Use
  Company Number: JPI-P-002818

PATIENT
  Age: 60 Year
  Sex: Female

DRUGS (4)
  1. XYREM [Suspect]
     Indication: FIBROMYALGIA
     Dosage: 4.5 GM (2.25 GM, 2 IN 1 D), ORAL
     Route: 048
     Dates: start: 20071223, end: 20071225
  2. AMITRIPTYLINE HCL [Concomitant]
  3. IBUPROFEN [Concomitant]
  4. OMEGA COMPLEX 3-6-9 (OMEGA /01454401/) [Concomitant]

REACTIONS (12)
  - ABDOMINAL PAIN UPPER [None]
  - ANXIETY [None]
  - ASTHENIA [None]
  - DIARRHOEA [None]
  - DIZZINESS [None]
  - DYSKINESIA [None]
  - FALL [None]
  - FEAR [None]
  - NAUSEA [None]
  - RETCHING [None]
  - SPEECH DISORDER [None]
  - VISUAL DISTURBANCE [None]
